FAERS Safety Report 7502583-1 (Version None)
Quarter: 2011Q1

REPORT INFORMATION
  Report Type: 
  Country: None (occurrence: None)
  Receive Date: 20110318
  Receipt Date: 20101012
  Transmission Date: 20110831
  Serious: Yes (Other)
  Sender: FDA-Public Use
  Company Number: 2010SP054372

PATIENT
  Age: 45 Year
  Sex: Female
  Weight: 65.7716 kg

DRUGS (14)
  1. PEG-INTRON [Suspect]
     Indication: HEPATITIS C
     Dosage: SC
     Route: 058
     Dates: start: 20100401
  2. ZANTAC [Concomitant]
  3. PREVACID [Concomitant]
  4. IMITREX [Concomitant]
  5. TRAZADOL [Concomitant]
  6. VISCOUS LIDOCAINE (LIDOCAINE HYDROCHLORIDE) [Concomitant]
  7. AMITRIPTYLINE HCL [Concomitant]
  8. ZOLOFT [Concomitant]
  9. NAPROXEN [Concomitant]
  10. RIBAVIRIN [Suspect]
     Indication: HEPATITIS C
     Dosage: 3 DF;BID;PO, 2 DF;BID;PO
     Route: 048
     Dates: start: 20100401, end: 20100801
  11. RIBAVIRIN [Suspect]
     Indication: HEPATITIS C
     Dosage: 3 DF;BID;PO, 2 DF;BID;PO
     Route: 048
     Dates: start: 20100801
  12. PROCRIT [Suspect]
     Indication: ANAEMIA
     Dosage: 40000 IU;SC
     Route: 058
  13. TYLENOL-500 [Concomitant]
  14. MAALOX [Concomitant]

REACTIONS (11)
  - PYREXIA [None]
  - VOMITING [None]
  - DIARRHOEA [None]
  - ABDOMINAL PAIN UPPER [None]
  - HEADACHE [None]
  - VISION BLURRED [None]
  - PAIN [None]
  - DEPRESSION [None]
  - MEMORY IMPAIRMENT [None]
  - ANAEMIA [None]
  - DYSPNOEA [None]
